FAERS Safety Report 8707655 (Version 3)
Quarter: 2012Q4

REPORT INFORMATION
  Report Type: Report from Study
  Country: US (occurrence: US)
  Receive Date: 20120806
  Receipt Date: 20121024
  Transmission Date: 20130627
  Serious: No
  Sender: FDA-Public Use
  Company Number: US-009507513-2012SP023741

PATIENT
  Sex: Male
  Weight: 69.39 kg

DRUGS (3)
  1. REBETOL [Suspect]
     Indication: HEPATITIS C
     Dosage: UNK UNK, Unknown
  2. PEGINTERFERON ALFA-2A [Suspect]
     Indication: HEPATITIS C
     Dosage: UNK
  3. GS-5885 [Suspect]
     Indication: HEPATITIS C
     Dosage: 60 mg, qd
     Route: 048
     Dates: start: 2012

REACTIONS (1)
  - Accidental overdose [Unknown]
